FAERS Safety Report 16808571 (Version 1)
Quarter: 2019Q3

REPORT INFORMATION
  Report Type: Report from Study
  Country: CO (occurrence: CO)
  Receive Date: 20190916
  Receipt Date: 20190916
  Transmission Date: 20191005
  Serious: Yes (Hospitalization)
  Sender: FDA-Public Use
  Company Number: CO-BRISTOL-MYERS SQUIBB COMPANY-BMS-2019-082975

PATIENT
  Age: 67 Year
  Sex: Male

DRUGS (3)
  1. RANITIDINE. [Concomitant]
     Active Substance: RANITIDINE
     Indication: PRODUCT USED FOR UNKNOWN INDICATION
     Route: 065
  2. PASEDOL [DIMENHYDRINATE] [Concomitant]
     Indication: PRODUCT USED FOR UNKNOWN INDICATION
     Route: 065
  3. ABATACEPT [Suspect]
     Active Substance: ABATACEPT
     Indication: RHEUMATOID ARTHRITIS
     Dosage: 750 MILLIGRAM
     Route: 042
     Dates: start: 20170728

REACTIONS (10)
  - Fatigue [Recovering/Resolving]
  - Gastritis [Recovering/Resolving]
  - Asthenia [Recovered/Resolved]
  - Nausea [Recovering/Resolving]
  - Headache [Recovered/Resolved]
  - Malaise [Unknown]
  - Dizziness [Recovered/Resolved]
  - Pyrexia [Recovering/Resolving]
  - Arthralgia [Recovering/Resolving]
  - Cough [Recovering/Resolving]

NARRATIVE: CASE EVENT DATE: 20190630
